FAERS Safety Report 6406115-0 (Version None)
Quarter: 2009Q4

REPORT INFORMATION
  Report Type: 
  Country: None (occurrence: None)
  Receive Date: 20091014
  Receipt Date: 20090930
  Transmission Date: 20100525
  Serious: Yes (Hospitalization)
  Sender: FDA-Public Use
  Company Number: 2009AC000081

PATIENT
  Age: 57 Year
  Sex: Female
  Weight: 104.3273 kg

DRUGS (16)
  1. DIGOXIN [Suspect]
     Dosage: 0.25 MG; QD; PO
     Route: 048
  2. RYTHMOL [Concomitant]
  3. AMIODARONE [Concomitant]
  4. OXYCODONE [Concomitant]
  5. LASIX [Concomitant]
  6. POTASSIUM CHLORIDE [Concomitant]
  7. COREG [Concomitant]
  8. ASPIRIN [Concomitant]
  9. LISINOPRIL [Concomitant]
  10. LANTUS [Concomitant]
  11. GLYBURIDE [Concomitant]
  12. VASERETIC [Concomitant]
  13. XALATAN [Concomitant]
  14. PHENOBARBITAL TAB [Concomitant]
  15. TYLOX [Concomitant]
  16. MECLIZINE [Concomitant]

REACTIONS (12)
  - ANAEMIA POSTOPERATIVE [None]
  - CORONARY ARTERY DISEASE [None]
  - ECONOMIC PROBLEM [None]
  - EMPTY SELLA SYNDROME [None]
  - FLUID OVERLOAD [None]
  - HYPERTENSION [None]
  - MIGRAINE [None]
  - MULTIPLE INJURIES [None]
  - MYOCARDIAL INFARCTION [None]
  - POST PROCEDURAL HAEMORRHAGE [None]
  - UNRESPONSIVE TO STIMULI [None]
  - VERTIGO [None]
